FAERS Safety Report 5482220-0 (Version None)
Quarter: 2007Q4

REPORT INFORMATION
  Report Type: 
  Country: None (occurrence: None)
  Receive Date: 20071011
  Receipt Date: 20071003
  Transmission Date: 20080405
  Serious: Yes (Other)
  Sender: FDA-Public Use
  Company Number: US-JNJFOC-20071001180

PATIENT
  Sex: Male
  Weight: 81.65 kg

DRUGS (4)
  1. REMICADE [Suspect]
     Indication: COLITIS ULCERATIVE
     Route: 042
  2. LEVOTHYROXINE SODIUM [Concomitant]
     Indication: THYROID DISORDER
  3. PREDNISONE [Concomitant]
  4. AVALIGE [Concomitant]
     Indication: HYPERTENSION

REACTIONS (4)
  - FISTULA [None]
  - INSOMNIA [None]
  - PROSTATITIS [None]
  - RASH [None]
